FAERS Safety Report 22531689 (Version 1)
Quarter: 2023Q2

REPORT INFORMATION
  Report Type: Spontaneous
  Country: US (occurrence: US)
  Receive Date: 20230607
  Receipt Date: 20230607
  Transmission Date: 20230721
  Serious: Yes (Other)
  Sender: FDA-Public Use
  Company Number: US-SANOFI-01641317

PATIENT
  Sex: Female

DRUGS (1)
  1. XYZAL [Suspect]
     Active Substance: LEVOCETIRIZINE DIHYDROCHLORIDE
     Dosage: 0.5 DF, QD

REACTIONS (5)
  - Urinary retention [Unknown]
  - Colitis [Unknown]
  - Malaise [Unknown]
  - Pain [Unknown]
  - Wrong technique in product usage process [Unknown]
